FAERS Safety Report 6933203-2 (Version None)
Quarter: 2010Q3

REPORT INFORMATION
  Report Type: 
  Country: None (occurrence: None)
  Receive Date: 20100820
  Receipt Date: 20100812
  Transmission Date: 20110219
  Serious: Yes (Hospitalization)
  Sender: FDA-Public Use
  Company Number: US-SHIRE-ALL1-2010-04247

PATIENT

DRUGS (6)
  1. FOSRENOL [Suspect]
     Indication: HYPERPHOSPHATAEMIA
     Dosage: 1000 MG, UNKNOWN
     Route: 048
  2. OXYCODONE [Suspect]
     Indication: NERVE COMPRESSION
     Dosage: UNK MG, OTHER, 5 MG/325 MG EVERY 6 HOURS
     Route: 048
     Dates: end: 20100801
  3. ABILIFY [Concomitant]
     Indication: THINKING ABNORMAL
     Dosage: 5 MG, UNKNOWN
     Route: 048
  4. NEPHROCAPS [Concomitant]
     Indication: VITAMIN SUPPLEMENTATION
     Dosage: UNK, UNKNOWN
     Route: 048
  5. ZOLOFT [Concomitant]
     Indication: NERVOUSNESS
     Dosage: UNK MG, UNKNOWN
     Route: 048
     Dates: end: 20100101
  6. LEXAPRO [Concomitant]
     Indication: NERVOUSNESS
     Dosage: 20 MG, UNKNOWN
     Route: 048
     Dates: start: 20100101

REACTIONS (5)
  - CARDIAC DISORDER [None]
  - CONDITION AGGRAVATED [None]
  - HALLUCINATION [None]
  - RENAL FAILURE [None]
  - TRANSFUSION [None]
